FAERS Safety Report 16681434 (Version 3)
Quarter: 2019Q4

REPORT INFORMATION
  Report Type: Spontaneous
  Country: US (occurrence: US)
  Receive Date: 20190808
  Receipt Date: 20191011
  Transmission Date: 20200122
  Serious: Yes (Other)
  Sender: FDA-Public Use
  Company Number: US-AMGEN-USASP2019123944

PATIENT
  Age: 71 Year
  Sex: Male
  Weight: 87.44 kg

DRUGS (6)
  1. ASPIRIN [ACETYLSALICYLIC ACID] [Concomitant]
     Active Substance: ASPIRIN
     Dosage: 81 MILLIGRAM
     Route: 048
  2. PLAVIX [Concomitant]
     Active Substance: CLOPIDOGREL BISULFATE
     Dosage: 75 MILLIGRAM, QD
     Route: 048
  3. PROTONIX [Concomitant]
     Active Substance: PANTOPRAZOLE SODIUM
     Dosage: 40 MILLIGRAM, QD
     Route: 048
  4. COREG [Concomitant]
     Active Substance: CARVEDILOL
     Dosage: 3.125 MILLIGRAM, BID
     Route: 048
  5. REPATHA [Suspect]
     Active Substance: EVOLOCUMAB
     Indication: HYPERCHOLESTEROLAEMIA
     Dosage: 140 MILLIGRAM, Q2WK
     Route: 058
     Dates: start: 20180117, end: 20180501
  6. REPATHA [Suspect]
     Active Substance: EVOLOCUMAB
     Indication: LOW DENSITY LIPOPROTEIN INCREASED
     Dosage: UNK
     Route: 058
     Dates: start: 20180703

REACTIONS (8)
  - Urinary tract infection [Recovered/Resolved]
  - Carotid artery stenosis [Unknown]
  - Transient ischaemic attack [Recovered/Resolved]
  - Precerebral artery thrombosis [Unknown]
  - Atrial tachycardia [Unknown]
  - Cystitis [Recovered/Resolved]
  - Cerebrovascular accident [Recovered/Resolved]
  - Bundle branch block right [Unknown]

NARRATIVE: CASE EVENT DATE: 20180314
